FAERS Safety Report 5786469-9 (Version None)
Quarter: 2008Q2

REPORT INFORMATION
  Report Type: 
  Country: None (occurrence: None)
  Receive Date: 20080624
  Receipt Date: 20080619
  Transmission Date: 20081010
  Serious: Yes (Death, Hospitalization)
  Sender: FDA-Public Use
  Company Number: FR-BRISTOL-MYERS SQUIBB COMPANY-14234983

PATIENT
  Age: 35 Year
  Sex: Female

DRUGS (2)
  1. ABILIFY [Suspect]
     Indication: SCHIZOPHRENIA
     Dosage: 15 MG DAILY WAS INITIATED FOUR OR FIVE MONTHS AGO
  2. SOLIAN [Suspect]
     Indication: SCHIZOPHRENIA
     Dosage: STOPPED AFTER AN OVERLAP PERIOD OF 3 WEEKS AND RESTARTED.

REACTIONS (2)
  - ABNORMAL BEHAVIOUR [None]
  - SUDDEN DEATH [None]
